FAERS Safety Report 5408073-4 (Version None)
Quarter: 2007Q3

REPORT INFORMATION
  Report Type: 
  Country: None (occurrence: None)
  Receive Date: 20070808
  Receipt Date: 20070731
  Transmission Date: 20080115
  Serious: Yes (Other)
  Sender: FDA-Public Use
  Company Number: PHBS2007BR12786

PATIENT
  Age: 31 Year
  Sex: Female
  Weight: 83 kg

DRUGS (1)
  1. CODATEN [Suspect]
     Indication: HEADACHE
     Dosage: 1 TABLET, Q8H
     Route: 048

REACTIONS (4)
  - GAIT DISTURBANCE [None]
  - INFLAMMATION [None]
  - MENSTRUATION DELAYED [None]
  - NEURALGIA [None]
